FAERS Safety Report 12603813 (Version 1)
Quarter: 2016Q3

REPORT INFORMATION
  Report Type: Spontaneous
  Country: US (occurrence: US)
  Receive Date: 20160728
  Receipt Date: 20160728
  Transmission Date: 20161109
  Serious: No
  Sender: FDA-Public Use
  Company Number: US-MYLANLABS-2016M1016700

PATIENT
  Sex: Male

DRUGS (3)
  1. THYROID [Suspect]
     Active Substance: LEVOTHYROXINE\LIOTHYRONINE
     Dosage: UNK
  2. NATURE-THROID [Suspect]
     Active Substance: THYROID, PORCINE
     Dosage: UNK
  3. LEVOTHYROXINE. [Suspect]
     Active Substance: LEVOTHYROXINE
     Dosage: UNK

REACTIONS (13)
  - Pain in extremity [Unknown]
  - Hypoaesthesia oral [Unknown]
  - Hot flush [Unknown]
  - Tremor [Unknown]
  - Peripheral coldness [Unknown]
  - Paraesthesia [Unknown]
  - Axillary pain [Unknown]
  - Drug hypersensitivity [Unknown]
  - Hypoaesthesia [Unknown]
  - Hangover [Unknown]
  - Heart rate irregular [Unknown]
  - Drug ineffective [Unknown]
  - Unevaluable event [Unknown]
